FAERS Safety Report 12192651 (Version 2)
Quarter: 2016Q1

REPORT INFORMATION
  Report Type: Spontaneous
  Country: US (occurrence: US)
  Receive Date: 20160318
  Receipt Date: 20160322
  Transmission Date: 20160526
  Serious: No
  Sender: FDA-Public Use
  Company Number: US-PFIZER INC-2016142213

PATIENT
  Age: 82 Year
  Sex: Female
  Weight: 73 kg

DRUGS (3)
  1. GABAPENTIN. [Suspect]
     Active Substance: GABAPENTIN
     Indication: PAIN
     Dosage: 300 MG, CAPSULES
     Dates: end: 20151215
  2. GABAPENTIN. [Suspect]
     Active Substance: GABAPENTIN
     Indication: PAIN
     Dosage: 300 MG, UNK
     Dates: end: 20151215
  3. ALEVE [Concomitant]
     Active Substance: NAPROXEN SODIUM
     Indication: SCIATICA
     Dosage: AS NEEDED
     Dates: start: 201512

REACTIONS (1)
  - Drug ineffective for unapproved indication [Unknown]
